FAERS Safety Report 8011793-9 (Version None)
Quarter: 2011Q4

REPORT INFORMATION
  Report Type: 
  Country: None (occurrence: None)
  Receive Date: 20111228
  Receipt Date: 20111221
  Transmission Date: 20120403
  Serious: Yes (Other)
  Sender: FDA-Public Use
  Company Number: AT-ABBOTT-11P-009-0885435-00

PATIENT
  Sex: Female

DRUGS (1)
  1. HUMIRA [Suspect]
     Indication: CROHN'S DISEASE

REACTIONS (7)
  - ABSCESS INTESTINAL [None]
  - MESENTERIC LYMPHADENOPATHY [None]
  - ABDOMINAL PAIN [None]
  - ILEAL STENOSIS [None]
  - CROHN'S DISEASE [None]
  - ILEITIS [None]
  - ABDOMINAL PAIN LOWER [None]
